FAERS Safety Report 8950311 (Version 1)
Quarter: 2012Q4

REPORT INFORMATION
  Report Type: Spontaneous
  Country: US (occurrence: None)
  Receive Date: 20121130
  Receipt Date: 20121130
  Transmission Date: 20130627
  Serious: Yes (Disabling)
  Sender: FDA-Public Use
  Company Number: None

PATIENT
  Sex: Male
  Weight: 97.52 kg

DRUGS (1)
  1. CIPROFLOXACIN 500 MG BAY [Suspect]
     Indication: STREPTOCOCCAL SORE THROAT
     Dates: start: 20121123, end: 20121128

REACTIONS (3)
  - Deafness bilateral [None]
  - Dysgeusia [None]
  - Agnosia [None]
